FAERS Safety Report 25929207 (Version 1)
Quarter: 2025Q4

REPORT INFORMATION
  Report Type: Spontaneous
  Country: EU (occurrence: EU)
  Receive Date: 20251016
  Receipt Date: 20251016
  Transmission Date: 20260118
  Serious: Yes (Life-Threatening)
  Sender: ORGANON
  Company Number: EU-ORGANON-O2510POL001068

PATIENT
  Age: 81 Year
  Sex: Female

DRUGS (1)
  1. COZAAR [Suspect]
     Active Substance: LOSARTAN POTASSIUM
     Dosage: UNK

REACTIONS (3)
  - Blood pressure increased [Unknown]
  - Angiopathy [Unknown]
  - Drug ineffective [Unknown]
